FAERS Safety Report 20551259 (Version 1)
Quarter: 2022Q1

REPORT INFORMATION
  Report Type: Report from Study
  Country: HU (occurrence: HU)
  Receive Date: 20220304
  Receipt Date: 20220304
  Transmission Date: 20220423
  Serious: Yes (Hospitalization)
  Sender: FDA-Public Use
  Company Number: HU-ABBVIE-22K-076-4270925-00

PATIENT
  Sex: Male

DRUGS (17)
  1. CARBIDOPA\LEVODOPA [Suspect]
     Active Substance: CARBIDOPA\LEVODOPA
     Indication: Parkinson^s disease
     Dosage: MORNING DOSE: 6.0 ML; CONTINUOUS DOSE: 4.2 ML/HOUR; EXTRA DOSE: 3.0 ML
     Route: 050
     Dates: start: 20151124
  2. CARBIDOPA\LEVODOPA [Suspect]
     Active Substance: CARBIDOPA\LEVODOPA
  3. PANTOPRAZOLE [Concomitant]
     Active Substance: PANTOPRAZOLE
     Indication: Gastrooesophageal reflux disease
     Route: 048
     Dates: start: 2012
  4. MIDERIZONE [Concomitant]
     Indication: Muscle spasms
     Route: 048
     Dates: start: 201203
  5. BISOPROLOL [Concomitant]
     Active Substance: BISOPROLOL
     Indication: Arrhythmia
     Dosage: HALF TABLET DAILY
     Route: 048
  6. BISOPROLOL [Concomitant]
     Active Substance: BISOPROLOL
     Indication: Myocardial ischaemia
  7. HYDROCHLOROTHIAZIDE [Concomitant]
     Active Substance: HYDROCHLOROTHIAZIDE
     Indication: Hypertension
     Route: 048
  8. AMILOZID-TEVA [Concomitant]
     Indication: Hypertension
     Dosage: 50 MG HYDROCHLOROTHIAZIDE, 5 MG AMILORIDE / TABLET, HALF TABLET DAILY
     Route: 048
     Dates: start: 2013
  9. .ALPHA.-LIPOIC ACID [Concomitant]
     Active Substance: .ALPHA.-LIPOIC ACID
     Indication: Diabetic neuropathy
     Route: 048
     Dates: start: 2017
  10. RIVOTRIL [Concomitant]
     Active Substance: CLONAZEPAM
     Indication: Depression
     Dosage: HALF TABLET DAILY
     Route: 048
     Dates: start: 2012
  11. NITRODERM TTT [Concomitant]
     Indication: Myocardial ischaemia
     Route: 062
     Dates: start: 201702
  12. BEZALIP RETARD [Concomitant]
     Indication: Hyperlipidaemia
     Dosage: HALF TABLET IN THE EVENING
     Route: 048
     Dates: start: 201702
  13. DOMPERIDON EP [Concomitant]
     Indication: Nausea
     Route: 048
  14. ASA PROTECT PHARMAVIT [Concomitant]
     Indication: Prophylaxis
     Route: 048
  15. MELOXEP [Concomitant]
     Indication: Product used for unknown indication
     Route: 048
  16. ALLOPURINOL [Concomitant]
     Active Substance: ALLOPURINOL
     Indication: Hyperuricaemia
     Route: 048
  17. TAMSULOSIN [Concomitant]
     Active Substance: TAMSULOSIN
     Indication: Benign prostatic hyperplasia
     Route: 048

REACTIONS (4)
  - Parkinson^s disease [Not Recovered/Not Resolved]
  - COVID-19 [Not Recovered/Not Resolved]
  - Parkinson^s disease [Recovered/Resolved]
  - Hypoaesthesia [Not Recovered/Not Resolved]

NARRATIVE: CASE EVENT DATE: 20211201
